FAERS Safety Report 12101098 (Version 2)
Quarter: 2020Q1

REPORT INFORMATION
  Report Type: Spontaneous
  Country: US (occurrence: US)
  Receive Date: 20160222
  Receipt Date: 20200210
  Transmission Date: 20200409
  Serious: No
  Sender: FDA-Public Use
  Company Number: US-PFIZER INC-2016095007

PATIENT
  Age: 65 Year
  Sex: Female
  Weight: 56.7 kg

DRUGS (2)
  1. TOVIAZ [Suspect]
     Active Substance: FESOTERODINE FUMARATE
     Indication: HYPERTONIC BLADDER
     Dosage: 1 (8MG TABLET), ONCE DAILY (TAKE 1 TABLET BY MOUTH EVERY DAY )
     Route: 048
  2. TOVIAZ [Suspect]
     Active Substance: FESOTERODINE FUMARATE
     Indication: OSTEOARTHRITIS

REACTIONS (2)
  - Urinary incontinence [Unknown]
  - Product dose omission [Unknown]

NARRATIVE: CASE EVENT DATE: 20160215
